FAERS Safety Report 16253378 (Version 4)
Quarter: 2019Q2

REPORT INFORMATION
  Report Type: Report from Study
  Country: PL (occurrence: PL)
  Receive Date: 20190430
  Receipt Date: 20190521
  Transmission Date: 20190711
  Serious: Yes (Hospitalization)
  Sender: FDA-Public Use
  Company Number: PL-ROCHE-2265755

PATIENT
  Age: 64 Year
  Sex: Male
  Weight: 72 kg

DRUGS (11)
  1. FLUKONAZOL [Concomitant]
     Active Substance: FLUCONAZOLE
     Indication: PHARYNGEAL INFLAMMATION
     Route: 065
     Dates: start: 20190201
  2. ATEZOLIZUMAB. [Suspect]
     Active Substance: ATEZOLIZUMAB
     Indication: HEPATOCELLULAR CARCINOMA
     Dosage: MOST RECENT DOSE OF ATEZOLIZUMAB PRIOR TO SAE ONSET ON 11/JAN/2019
     Route: 042
     Dates: start: 20181022
  3. CIPRONEX [CIPROFLOXACIN] [Concomitant]
     Indication: PHARYNGEAL INFLAMMATION
     Route: 065
     Dates: start: 20190201, end: 20190211
  4. HELICID [OMEPRAZOLE] [Concomitant]
     Indication: DYSPHAGIA
     Route: 065
     Dates: start: 20190201
  5. MATRIFEN [Concomitant]
     Active Substance: FENTANYL
     Indication: PAIN
     Route: 065
     Dates: start: 20190207
  6. NYSTATIN. [Concomitant]
     Active Substance: NYSTATIN
     Indication: DISCOMFORT
     Route: 065
     Dates: start: 20190111, end: 20190201
  7. HEPAREGEN [Concomitant]
     Route: 065
     Dates: start: 20190111
  8. KETONAL [KETOPROFEN] [Concomitant]
     Indication: PAIN
     Route: 065
     Dates: start: 20190201, end: 20190207
  9. TRAMAL [Concomitant]
     Active Substance: TRAMADOL
     Indication: PAIN
     Route: 065
     Dates: start: 20190202
  10. BEVACIZUMAB. [Suspect]
     Active Substance: BEVACIZUMAB
     Indication: HEPATOCELLULAR CARCINOMA
     Dosage: MOST RECENT DOSE OF BEVACIZUMAB (1065 MG) PRIOR TO SAE ONSET ON 11/JAN/2019
     Route: 042
     Dates: start: 20181022
  11. KETONAL [KETOPROFEN] [Concomitant]
     Indication: DYSPHAGIA

REACTIONS (1)
  - Acute kidney injury [Recovered/Resolved]

NARRATIVE: CASE EVENT DATE: 20190213
